FAERS Safety Report 6736934-2 (Version None)
Quarter: 2010Q2

REPORT INFORMATION
  Report Type: 
  Country: None (occurrence: None)
  Receive Date: 20100521
  Receipt Date: 20100514
  Transmission Date: 20101027
  Serious: Yes (Other)
  Sender: FDA-Public Use
  Company Number: US-AMGEN-QUU412357

PATIENT
  Sex: Female

DRUGS (2)
  1. NPLATE [Suspect]
     Indication: IDIOPATHIC THROMBOCYTOPENIC PURPURA
     Dates: start: 20100208, end: 20100506
  2. RITUXIMAB [Concomitant]
     Dates: start: 20100114, end: 20100322

REACTIONS (3)
  - DRUG INEFFECTIVE [None]
  - RETICULIN INCREASED [None]
  - THROMBOCYTOPENIA [None]
